FAERS Safety Report 4917074-1 (Version None)
Quarter: 2006Q1

REPORT INFORMATION
  Report Type: 
  Country: None (occurrence: None)
  Receive Date: 20060216
  Receipt Date: 20060216
  Transmission Date: 20060701
  Serious: Yes (Other)
  Sender: FDA-Public Use
  Company Number: None

PATIENT
  Age: 77 Year
  Sex: Male
  Weight: 90.3 kg

DRUGS (12)
  1. FORMOTEROL [Suspect]
  2. LORATADINE [Concomitant]
  3. ALBUTEROL [Concomitant]
  4. METOCLOPRAMIDE HCL [Concomitant]
  5. FINASTERIDE [Concomitant]
  6. OMEPRAZOLE [Concomitant]
  7. SIMVASTATIN [Concomitant]
  8. VALSARTAN [Concomitant]
  9. QUININE SULFATE [Concomitant]
  10. FLUNISOLIDE [Concomitant]
  11. ATENOLOL [Concomitant]
  12. TRIAMCINOLONE [Concomitant]

REACTIONS (1)
  - HEADACHE [None]
